FAERS Safety Report 5746890-1 (Version None)
Quarter: 2008Q2

REPORT INFORMATION
  Report Type: 
  Country: None (occurrence: None)
  Receive Date: 20080520
  Receipt Date: 20080520
  Transmission Date: 20081010
  Serious: No
  Sender: FDA-Public Use
  Company Number: None

PATIENT
  Age: 58 Year
  Sex: Male
  Weight: 74.39 kg

DRUGS (1)
  1. VENLAFAXINE HCL [Suspect]
     Dosage: 75 MG EVERY DAY PO
     Route: 048
     Dates: start: 20080314, end: 20080514

REACTIONS (3)
  - HEPATIC ENZYME INCREASED [None]
  - HYPERTENSION [None]
  - SUICIDAL IDEATION [None]
